FAERS Safety Report 10128605 (Version 2)
Quarter: 2014Q2

REPORT INFORMATION
  Report Type: Report from Study
  Country: JP (occurrence: JP)
  Receive Date: 20140428
  Receipt Date: 20140428
  Transmission Date: 20141212
  Serious: Yes (Life-Threatening, Hospitalization)
  Sender: FDA-Public Use
  Company Number: JP-ROCHE-1380793

PATIENT
  Age: 70 Year
  Sex: Female
  Weight: 57 kg

DRUGS (15)
  1. BEVACIZUMAB [Suspect]
     Indication: BREAST CANCER METASTATIC
     Route: 041
     Dates: start: 20140212, end: 2014
  2. PACLITAXEL [Suspect]
     Indication: BREAST CANCER METASTATIC
     Route: 041
     Dates: start: 20140212, end: 2014
  3. NEUQUINON [Concomitant]
     Indication: ARRHYTHMIA
     Route: 048
  4. PARIET [Concomitant]
     Indication: PROPHYLAXIS AGAINST GASTROINTESTINAL ULCER
     Route: 048
  5. MYSLEE [Concomitant]
     Indication: PROPHYLAXIS
     Route: 048
  6. HYPEN [Concomitant]
     Indication: BACK PAIN
     Route: 048
  7. HYALEIN [Concomitant]
     Indication: DRY EYE
     Route: 047
  8. AZOPT [Concomitant]
     Indication: GLAUCOMA
     Route: 047
  9. DETANTOL [Concomitant]
     Indication: GLAUCOMA
     Route: 047
  10. XALATAN [Concomitant]
     Indication: GLAUCOMA
     Route: 047
  11. NOVOLIN R [Concomitant]
     Indication: DIABETES MELLITUS
     Route: 058
  12. LANTUS [Concomitant]
     Indication: DIABETES MELLITUS
     Route: 058
  13. CIPROXAN [Concomitant]
     Indication: INFECTION PROPHYLAXIS
     Route: 048
     Dates: start: 20140331, end: 20140402
  14. RANMARK [Concomitant]
     Indication: METASTASES TO BONE
     Route: 058
     Dates: start: 20140212
  15. DENOTAS [Concomitant]
     Indication: MINERAL SUPPLEMENTATION
     Route: 048
     Dates: start: 20140212

REACTIONS (2)
  - Pneumonitis [Recovering/Resolving]
  - Decreased appetite [Recovering/Resolving]
